FAERS Safety Report 8445739 (Version 3)
Quarter: 2013Q1

REPORT INFORMATION
  Report Type: Report from Study
  Country: FR (occurrence: FR)
  Receive Date: 20120307
  Receipt Date: 20130327
  Transmission Date: 20140127
  Serious: Yes (Hospitalization)
  Sender: FDA-Public Use
  Company Number: FR-CELGENEUS-056-21880-12013165

PATIENT
  Age: 46 Year
  Sex: Male

DRUGS (15)
  1. REVLIMID [Suspect]
     Indication: PLASMA CELL MYELOMA
     Dosage: 25 MILLIGRAM
     Route: 048
     Dates: start: 20120119, end: 20120125
  2. REVLIMID [Suspect]
     Dosage: 25 MILLIGRAM
     Route: 048
     Dates: start: 20120213, end: 20120220
  3. REVLIMID [Suspect]
     Route: 048
     Dates: start: 20120223
  4. BORTEZOMIB [Suspect]
     Indication: PLASMA CELL MYELOMA
     Dosage: 2.353 MILLIGRAM
     Route: 065
     Dates: start: 20120119, end: 20120123
  5. BORTEZOMIB [Suspect]
     Dosage: 2.353 MILLIGRAM
     Route: 065
     Dates: start: 20120213, end: 20120220
  6. BORTEZOMIB [Suspect]
     Route: 065
     Dates: start: 20120305
  7. DEXAMETHASONE [Suspect]
     Indication: PLASMA CELL MYELOMA
     Dosage: 20 MILLIGRAM
     Route: 065
     Dates: start: 20120119, end: 20120123
  8. DEXAMETHASONE [Suspect]
     Dosage: 20 MILLIGRAM
     Route: 065
     Dates: start: 20120213, end: 20120220
  9. DEXAMETHASONE [Suspect]
     Route: 065
     Dates: start: 20120305
  10. INNOHEP [Concomitant]
     Indication: PROPHYLAXIS
     Route: 065
     Dates: start: 20120119
  11. BACTRIM [Concomitant]
     Indication: PROPHYLAXIS
     Route: 048
     Dates: start: 20120119
  12. ZELITREX [Concomitant]
     Indication: PROPHYLAXIS
     Route: 048
     Dates: start: 20120119
  13. CLAMOXYL [Concomitant]
     Indication: PROPHYLAXIS
     Dosage: 2 GRAM
     Route: 065
     Dates: start: 20120123
  14. DURAGESIC [Concomitant]
     Indication: PAIN
     Route: 062
     Dates: start: 20120119
  15. OXYNORM [Concomitant]
     Indication: PAIN
     Dosage: 10 MILLIGRAM
     Route: 048
     Dates: start: 20120119

REACTIONS (2)
  - Lung disorder [Recovered/Resolved]
  - Pyrexia [Recovered/Resolved]
